FAERS Safety Report 9469341 (Version 1)
Quarter: 2013Q3

REPORT INFORMATION
  Report Type: Report from Study
  Country: FR (occurrence: FR)
  Receive Date: 20130821
  Receipt Date: 20130821
  Transmission Date: 20140515
  Serious: No
  Sender: FDA-Public Use
  Company Number: PHHY2013FR089730

PATIENT
  Age: 72 Year
  Sex: Male

DRUGS (9)
  1. AMN107 [Suspect]
     Indication: CHRONIC MYELOID LEUKAEMIA
     Dosage: 400 MG, PER DAY
     Dates: start: 20110502, end: 20110725
  2. INEXIUM//ESOMEPRAZOLE MAGNESIUM [Concomitant]
     Indication: GASTRITIS PROPHYLAXIS
     Dosage: 20 UKN, UNK
  3. LOXEN [Concomitant]
     Indication: HYPERTENSION
     Dosage: 1 CP X 2 PER DAY
  4. COVERSYL                                /BEL/ [Concomitant]
     Indication: HYPERTENSION
     Dosage: 8 MG, PER DAY
  5. TAHOR [Concomitant]
     Indication: HYPERCHOLESTEROLAEMIA
     Dosage: 1 DF, PER DAY
  6. ALLOPURINOL [Concomitant]
     Indication: HYPERURICAEMIA
     Dosage: 100 MG, PER DAY
  7. DIFFU-K [Concomitant]
     Indication: HYPOKALAEMIA
     Dosage: 1 CP X 2 PER DAY
  8. JOSIR [Concomitant]
     Indication: PROSTATIC ADENOMA
     Dosage: 1 CP PER DAY
  9. PIASCLEDINE                        /01305801/ [Concomitant]
     Indication: ARTHRITIS
     Dosage: UNK

REACTIONS (4)
  - Constipation [Not Recovered/Not Resolved]
  - Flatulence [Not Recovered/Not Resolved]
  - Abdominal pain [Not Recovered/Not Resolved]
  - Functional gastrointestinal disorder [Not Recovered/Not Resolved]
